FAERS Safety Report 9789082 (Version 2)
Quarter: 2013Q4

REPORT INFORMATION
  Report Type: Report from Study
  Country: US (occurrence: US)
  Receive Date: 20131230
  Receipt Date: 20131230
  Transmission Date: 20140711
  Serious: Yes (Other)
  Sender: FDA-Public Use
  Company Number: US-ABBVIE-13P-163-1155368-00

PATIENT
  Age: 29 Year
  Sex: Male

DRUGS (4)
  1. HUMIRA [Suspect]
     Indication: CROHN^S DISEASE
     Dates: start: 20130808, end: 201309
  2. HUMIRA [Suspect]
     Dates: start: 20130920
  3. HUMIRA [Suspect]
     Dates: end: 20131101
  4. ENTOCORT [Concomitant]
     Indication: PRODUCT USED FOR UNKNOWN INDICATION
     Dosage: WILL TAPER DOWN TO 3MG NEXT FRIDAY

REACTIONS (11)
  - Fistula [Recovering/Resolving]
  - Intestinal resection [Recovering/Resolving]
  - Ileostomy [Recovering/Resolving]
  - Nausea [Recovering/Resolving]
  - Pyrexia [Recovering/Resolving]
  - Gastrointestinal anastomotic leak [Recovering/Resolving]
  - Change of bowel habit [Recovering/Resolving]
  - Abdominal pain lower [Recovering/Resolving]
  - Vomiting [Recovering/Resolving]
  - Crohn^s disease [Not Recovered/Not Resolved]
  - Palpitations [Recovered/Resolved]
